FAERS Safety Report 10522024 (Version 1)
Quarter: 2014Q4

REPORT INFORMATION
  Report Type: Spontaneous
  Country: GB (occurrence: None)
  Receive Date: 20141014
  Receipt Date: 20141014
  Transmission Date: 20150528
  Serious: Yes (Death, Other)
  Sender: FDA-Public Use
  Company Number: GB-AIKEM-000735

PATIENT
  Age: 75 Year
  Sex: Female

DRUGS (6)
  1. ROSUVASTATIN [Concomitant]
     Active Substance: ROSUVASTATIN
  2. LEVOTHYROXINE [Concomitant]
     Active Substance: LEVOTHYROXINE
  3. FUROSEMIDE. [Concomitant]
     Active Substance: FUROSEMIDE
  4. WARFARIN (WARFARIN) [Suspect]
     Active Substance: WARFARIN
     Indication: CEREBROVASCULAR ACCIDENT
     Route: 048
     Dates: start: 199703
  5. BISOPROLOL [Concomitant]
     Active Substance: BISOPROLOL
  6. CEPHALEXIN (CEFALEXIN) [Suspect]
     Active Substance: CEPHALEXIN
     Indication: KIDNEY INFECTION
     Route: 048
     Dates: start: 20130806

REACTIONS (5)
  - Muscle twitching [None]
  - Subdural haemorrhage [None]
  - Transient ischaemic attack [None]
  - Drug interaction [None]
  - Seizure [None]
